FAERS Safety Report 4341118-1 (Version None)
Quarter: 2004Q2

REPORT INFORMATION
  Report Type: 
  Country: None (occurrence: None)
  Receive Date: 20040413
  Receipt Date: 20040401
  Transmission Date: 20050107
  Serious: Yes (Hospitalization, Other)
  Sender: FDA-Public Use
  Company Number: NSADSS2001032710

PATIENT
  Age: 33 Year
  Sex: Male

DRUGS (5)
  1. REMICADE [Suspect]
     Indication: RHEUMATOID ARTHRITIS
     Dosage: 3 MG/KG, 1 IN 1 AS NECESSARY, INTRAVENOUS DRIP
     Route: 042
     Dates: start: 20010301, end: 20010301
  2. MEDROL [Concomitant]
  3. METHOTREXATE [Concomitant]
  4. MESULID (NIMESULIDE) [Concomitant]
  5. CYTOTEC [Concomitant]

REACTIONS (3)
  - FACIAL PARESIS [None]
  - NEUROPATHY PERIPHERAL [None]
  - VIITH NERVE PARALYSIS [None]
